FAERS Safety Report 5734202-9 (Version None)
Quarter: 2008Q2

REPORT INFORMATION
  Report Type: 
  Country: None (occurrence: None)
  Receive Date: 20080510
  Receipt Date: 20080508
  Transmission Date: 20081010
  Serious: Yes (Hospitalization, Other)
  Sender: FDA-Public Use
  Company Number: PHHO2007US03210

PATIENT
  Sex: Male
  Weight: 72.7 kg

DRUGS (4)
  1. GLEEVEC [Suspect]
     Indication: GASTROINTESTINAL STROMAL TUMOUR
     Dosage: 400 MG, QD
     Route: 048
     Dates: start: 20060926, end: 20061127
  2. BENADRYL [Concomitant]
  3. VITAMIN CAP [Concomitant]
  4. ASPIRIN [Concomitant]

REACTIONS (6)
  - COLONOSCOPY [None]
  - GASTRIC ULCER [None]
  - HAEMATOCHEZIA [None]
  - HAEMATOCRIT DECREASED [None]
  - LARGE INTESTINAL ULCER [None]
  - RECTAL HAEMORRHAGE [None]
